FAERS Safety Report 9424353 (Version 1)
Quarter: 2013Q3

REPORT INFORMATION
  Report Type: Spontaneous
  Country: US (occurrence: None)
  Receive Date: 20130726
  Receipt Date: 20130726
  Transmission Date: 20140515
  Serious: Yes (Other)
  Sender: FDA-Public Use
  Company Number: None

PATIENT
  Age: 60 Year
  Sex: Female
  Weight: 68.04 kg

DRUGS (1)
  1. EFFEXOR XR 75MG [Suspect]
     Indication: ANXIETY
     Dosage: 75MG?1 X DAY?MOUTH
     Route: 048

REACTIONS (3)
  - Headache [None]
  - Tremor [None]
  - Product substitution issue [None]
